FAERS Safety Report 9396710 (Version 1)
Quarter: 2013Q3

REPORT INFORMATION
  Report Type: Spontaneous
  Country: FR (occurrence: FR)
  Receive Date: 20130712
  Receipt Date: 20130712
  Transmission Date: 20140515
  Serious: Yes (Other)
  Sender: FDA-Public Use
  Company Number: FR-AMGEN-FRASP2013048574

PATIENT
  Age: 62 Year
  Sex: Male

DRUGS (9)
  1. ENBREL [Suspect]
     Indication: RHEUMATOID ARTHRITIS
     Dosage: 50 MG, WEEKLY
     Route: 058
     Dates: start: 20110527, end: 20130225
  2. NOVATREX /00113801/ [Suspect]
     Indication: RHEUMATOID ARTHRITIS
     Dosage: 17.5 MG, WEEKLY
     Route: 048
     Dates: start: 2002, end: 200903
  3. METOJECT [Suspect]
     Indication: RHEUMATOID ARTHRITIS
     Dosage: 10 MG, WEEKLY
     Route: 058
     Dates: start: 200903
  4. PLAQUENIL                          /00072602/ [Concomitant]
     Indication: RHEUMATOID ARTHRITIS
     Dosage: UNK
     Route: 048
     Dates: start: 1986
  5. SOLUPRED                           /00016201/ [Concomitant]
     Indication: RHEUMATOID ARTHRITIS
     Dosage: 80 MG, 1X/DAY
     Route: 048
     Dates: start: 200903, end: 200906
  6. ALLOCHRYSINE                       /00499201/ [Concomitant]
     Indication: RHEUMATOID ARTHRITIS
     Dosage: UNK
     Dates: end: 2002
  7. LESCOL [Concomitant]
     Dosage: UNK
  8. INIPOMP [Concomitant]
     Dosage: UNK
  9. PREVISCAN                          /00789001/ [Concomitant]
     Dosage: UNK

REACTIONS (1)
  - Hodgkin^s disease mixed cellularity stage unspecified [Not Recovered/Not Resolved]
